FAERS Safety Report 18049152 (Version 1)
Quarter: 2020Q3

REPORT INFORMATION
  Report Type: Spontaneous
  Country: US (occurrence: US)
  Receive Date: 20200721
  Receipt Date: 20200721
  Transmission Date: 20201103
  Serious: No
  Sender: FDA-Public Use
  Company Number: US-PFIZER INC-2020277081

PATIENT
  Age: 44 Year
  Sex: Male
  Weight: 95.25 kg

DRUGS (1)
  1. LEVOTHYROXINE SODIUM. [Suspect]
     Active Substance: LEVOTHYROXINE SODIUM
     Indication: THYROXINE DECREASED
     Dosage: 100 UG, DAILY
     Route: 048
     Dates: start: 2004

REACTIONS (1)
  - Therapeutic product effect incomplete [Unknown]
